FAERS Safety Report 5017809-6 (Version None)
Quarter: 2006Q2

REPORT INFORMATION
  Report Type: 
  Country: None (occurrence: None)
  Receive Date: 20060605
  Receipt Date: 20060425
  Transmission Date: 20061013
  Serious: Yes (Life-Threatening)
  Sender: FDA-Public Use
  Company Number: 2006AP01928

PATIENT
  Age: 22468 Day
  Sex: Male
  Weight: 55.4 kg

DRUGS (12)
  1. IRESSA [Suspect]
     Indication: LUNG NEOPLASM MALIGNANT
     Route: 048
     Dates: start: 20060215
  2. HUMACART 3/7 [Concomitant]
     Indication: DIABETES MELLITUS
     Dates: end: 20060222
  3. HUMACART 3/7 [Concomitant]
     Dates: start: 20060223, end: 20060413
  4. HUMACART 3/7 [Concomitant]
     Dates: start: 20060414, end: 20060425
  5. RYTHMODAN [Concomitant]
     Indication: ARRHYTHMIA
     Route: 048
  6. ADONA [Concomitant]
     Indication: HAEMOPTYSIS
     Route: 048
  7. TRANSAMIN [Concomitant]
     Indication: HAEMOPTYSIS
     Route: 048
  8. PANALDINE [Concomitant]
     Indication: CEREBRAL INFARCTION
     Route: 048
  9. DEPAS [Concomitant]
     Indication: ANXIETY DISORDER
     Route: 048
  10. MYSLEE [Concomitant]
     Indication: ANXIETY DISORDER
     Route: 048
  11. TAKEPRON [Concomitant]
     Indication: GASTRIC ULCER
     Route: 048
  12. NU-LOTAN [Concomitant]
     Indication: HYPERTENSION
     Route: 048

REACTIONS (1)
  - HYPOGLYCAEMIA [None]
